FAERS Safety Report 20567866 (Version 2)
Quarter: 2022Q2

REPORT INFORMATION
  Report Type: Spontaneous
  Country: EG (occurrence: EG)
  Receive Date: 20220308
  Receipt Date: 20220406
  Transmission Date: 20220721
  Serious: Yes (Death, Hospitalization)
  Sender: FDA-Public Use
  Company Number: EG-PFIZER INC-2020478893

PATIENT
  Age: 68 Year
  Sex: Female

DRUGS (12)
  1. IBRANCE [Suspect]
     Active Substance: PALBOCICLIB
     Indication: Breast cancer metastatic
     Dosage: 125 MG, CYCLIC (ONCE DAILY WITH FOOD FOR 21 DAYS FOLLOWED BY 7 DAYS OFF TREATMENT)
     Route: 048
     Dates: start: 2019, end: 20220327
  2. FEMARA [Concomitant]
     Active Substance: LETROZOLE
     Dosage: 2.5 MG, 1X/DAY [ONE TABLET DAILY IN THE EVENING]
  3. PANADOL [Concomitant]
     Active Substance: ACETAMINOPHEN
     Dosage: 2 DF, 2X/DAY [2 TABLETS EVERY 12 HOURS]
  4. ZOFRAN [Concomitant]
     Active Substance: ONDANSETRON HYDROCHLORIDE
     Dosage: 80 MG, 1X/DAY [ZOFRAN TABS 80 MG- TABLET DAILY]
  5. OSTEOCARE [CALCIUM;COLECALCIFEROL;MAGNESIUM;ZINC] [Concomitant]
     Dosage: 3 DF, 1X/DAY [3 TABLETS DAILY ONE HOUR BEFORE MEALS]
  6. ALPHA [ALFACALCIDOL] [Concomitant]
     Dosage: 1 MG, 1X/DAY [1 MG- ONE TABLET DAILY]
  7. SILYMARIN PLUS [Concomitant]
     Dosage: UNK, 3X/DAY [SILYMARIN PLUS- 3 TIMES DAILY]
  8. LIVAGOAL [Concomitant]
     Dosage: UNK, 2X/DAY [LIVAGOAL-EVERY 12 HOURS]
  9. GYNO DAKTARIN [Concomitant]
     Dosage: UNK [GYNODAKTARIN- DAILY FOR 7 DAYS]
  10. PEGFILGRASTIM [Concomitant]
     Active Substance: PEGFILGRASTIM
     Dosage: UNK
     Route: 058
  11. XGEVA [Concomitant]
     Active Substance: DENOSUMAB
     Dosage: UNK
  12. RANITIDINE [Concomitant]
     Active Substance: RANITIDINE
     Dosage: UNK, 2X/DAY(TWICE DAILY BEFORE MEALS)

REACTIONS (4)
  - Death [Fatal]
  - Coma [Unknown]
  - Hepatic enzyme increased [Unknown]
  - Abdominal pain upper [Unknown]
